FAERS Safety Report 10286778 (Version 3)
Quarter: 2016Q3

REPORT INFORMATION
  Report Type: Spontaneous
  Country: US (occurrence: US)
  Receive Date: 20140709
  Receipt Date: 20160902
  Transmission Date: 20161109
  Serious: Yes (Death, Life-Threatening, Hospitalization, Other)
  Sender: FDA-Public Use
  Company Number: US-ACTELION-A-US2014-101185

PATIENT
  Age: 90 Year
  Sex: Female

DRUGS (22)
  1. ARANESP [Concomitant]
     Active Substance: DARBEPOETIN ALFA
     Dosage: 100 MCG, UNK
  2. CEPHULAC [Concomitant]
     Active Substance: LACTULOSE
     Indication: CONSTIPATION
     Dosage: 15 ML, BID
     Route: 048
  3. DIOVAN [Concomitant]
     Active Substance: VALSARTAN
     Dosage: 160 MG, UNK
  4. ASPIRIN. [Concomitant]
     Active Substance: ASPIRIN
     Dosage: 81 MG, UNK
  5. TRACLEER [Suspect]
     Active Substance: BOSENTAN
     Indication: PULMONARY ARTERIAL HYPERTENSION
     Dosage: 125 MG, BID
     Route: 048
     Dates: start: 2006, end: 20140507
  6. SILDENAFIL. [Concomitant]
     Active Substance: SILDENAFIL
  7. DOCUSATE [Concomitant]
     Active Substance: DOCUSATE
     Dosage: 200 MG, QPM
     Route: 048
  8. ACCUNEB [Concomitant]
     Active Substance: ALBUTEROL SULFATE
     Dosage: 0.63 MG, QID
  9. VITAMIN D [Concomitant]
     Active Substance: CHOLECALCIFEROL
  10. NORCO [Concomitant]
     Active Substance: ACETAMINOPHEN\HYDROCODONE BITARTRATE
     Indication: PAIN
     Dosage: 0.5 T, BID
  11. PROCTOFOAM [Concomitant]
     Active Substance: PRAMOXINE HYDROCHLORIDE
     Dosage: UNK, BID
     Route: 054
  12. ATROVENT [Concomitant]
     Active Substance: IPRATROPIUM BROMIDE
     Dosage: 0.5 MG, QID
  13. TEARS RENEWED [Concomitant]
     Dosage: UNK, QID
  14. VENTOLIN [Concomitant]
     Active Substance: ALBUTEROL SULFATE
     Indication: WHEEZING
     Dosage: 2 PUFF, Q4HRS
  15. LASIX [Concomitant]
     Active Substance: FUROSEMIDE
     Dosage: 20 MG, QAM
     Route: 048
  16. REMERON [Concomitant]
     Active Substance: MIRTAZAPINE
     Dosage: 15 MG, QPM
  17. COREG [Concomitant]
     Active Substance: CARVEDILOL
     Dosage: 3.125 MG, UNK
  18. LASIX [Concomitant]
     Active Substance: FUROSEMIDE
     Dosage: 20 MG, QPM
     Route: 048
  19. PREPARATION H NOS [Concomitant]
     Active Substance: COCOA BUTTER\PETROLATUM\PHENYLEPHRINE HYDROCHLORIDE\PHENYLEPHRINE HYDROCHLORIDE OR MINERAL OIL
     Dosage: UNK, BID
     Route: 054
  20. ANUSOL HC [Concomitant]
     Active Substance: HYDROCORTISONE
     Dosage: 25 MG, BID
     Route: 054
  21. BUMEX [Concomitant]
     Active Substance: BUMETANIDE
     Dosage: 1 MG, UNK
  22. DILTIAZEM XR [Concomitant]
     Active Substance: DILTIAZEM
     Dosage: 120 MG, UNK

REACTIONS (37)
  - Pericardial effusion [Unknown]
  - Abdominal distension [Unknown]
  - Acute kidney injury [Unknown]
  - Hypotension [Unknown]
  - Anxiety [Unknown]
  - Vitreous detachment [Unknown]
  - Intraocular lens implant [Unknown]
  - Pulmonary fibrosis [Fatal]
  - Hepatic neoplasm [Unknown]
  - Iron deficiency anaemia [Unknown]
  - Atrial fibrillation [Unknown]
  - Urge incontinence [Unknown]
  - Glaucoma [Unknown]
  - Respiratory failure [Fatal]
  - Dyspnoea exertional [Recovering/Resolving]
  - Dyspnoea [Recovering/Resolving]
  - Nephrogenic anaemia [Unknown]
  - Rotator cuff syndrome [Unknown]
  - Osteoarthritis [Unknown]
  - Persistent depressive disorder [Unknown]
  - Cystoid macular oedema [Unknown]
  - Hepatic cirrhosis [Unknown]
  - Ascites [Unknown]
  - Generalised oedema [Unknown]
  - Alcoholism [Unknown]
  - Adjustment disorder [Unknown]
  - Cor pulmonale [Fatal]
  - Peritonitis bacterial [Unknown]
  - Chronic kidney disease [Unknown]
  - Urinary tract infection [Unknown]
  - Mixed incontinence [Unknown]
  - Dry eye [Unknown]
  - Blepharitis [Unknown]
  - Cardiac failure [Fatal]
  - Dyspnoea [Unknown]
  - Right ventricular failure [Unknown]
  - Vitritis [Recovered/Resolved]

NARRATIVE: CASE EVENT DATE: 20070124
